FAERS Safety Report 17508435 (Version 10)
Quarter: 2024Q4

REPORT INFORMATION
  Report Type: Report from Study
  Country: US (occurrence: US)
  Receive Date: 20200306
  Receipt Date: 20241224
  Transmission Date: 20250115
  Serious: Yes (Hospitalization, Other)
  Sender: DAIICHI
  Company Number: None

PATIENT

DRUGS (2)
  1. PEXIDARTINIB [Suspect]
     Active Substance: PEXIDARTINIB
     Indication: Neoplasm
     Dosage: 200 MG QAM AND 400 MG QPM
     Route: 048
     Dates: start: 20200209
  2. PEXIDARTINIB [Suspect]
     Active Substance: PEXIDARTINIB
     Dosage: 3 DF 1 QAM, 2 QPM
     Route: 048
     Dates: start: 20200224, end: 20200229

REACTIONS (21)
  - Hepatic enzyme increased [Recovered/Resolved]
  - Alanine aminotransferase increased [Recovered/Resolved]
  - Aspartate aminotransferase increased [Recovered/Resolved]
  - Blood alkaline phosphatase increased [Recovered/Resolved]
  - Gamma-glutamyltransferase increased [Recovered/Resolved]
  - Bilirubin conjugated increased [Recovered/Resolved]
  - Blood bilirubin increased [Recovered/Resolved]
  - Jaundice [Recovered/Resolved]
  - Hepatic failure [Recovered/Resolved]
  - Hepatotoxicity [Recovered/Resolved]
  - Back pain [Not Recovered/Not Resolved]
  - Cardiac flutter [Unknown]
  - Dry mouth [Unknown]
  - Pain [Unknown]
  - Fatigue [Unknown]
  - Abdominal distension [Unknown]
  - Feeling abnormal [Unknown]
  - Ageusia [Unknown]
  - Dysgeusia [Unknown]
  - Neutrophil count decreased [Unknown]
  - Inappropriate schedule of product administration [Unknown]

NARRATIVE: CASE EVENT DATE: 20200101
